FAERS Safety Report 7035302-6 (Version None)
Quarter: 2010Q4

REPORT INFORMATION
  Report Type: 
  Country: None (occurrence: None)
  Receive Date: 20101008
  Receipt Date: 20100930
  Transmission Date: 20110411
  Serious: Yes (Hospitalization)
  Sender: FDA-Public Use
  Company Number: B0677005A

PATIENT
  Sex: Female

DRUGS (1)
  1. MALARONE [Suspect]
     Dosage: 1G PER DAY
     Route: 048
     Dates: start: 20100908, end: 20100910

REACTIONS (9)
  - ABDOMINAL PAIN [None]
  - CHOLESTASIS [None]
  - DYSURIA [None]
  - HEPATOCELLULAR INJURY [None]
  - HEPATOSPLENOMEGALY [None]
  - LIVER DISORDER [None]
  - PANCYTOPENIA [None]
  - PROTHROMBIN LEVEL ABNORMAL [None]
  - VOMITING [None]
